FAERS Safety Report 15647448 (Version 5)
Quarter: 2019Q2

REPORT INFORMATION
  Report Type: Spontaneous
  Country: GB (occurrence: GB)
  Receive Date: 20181122
  Receipt Date: 20190521
  Transmission Date: 20190711
  Serious: Yes (Hospitalization)
  Sender: FDA-Public Use
  Company Number: GB-ROCHE-2217773

PATIENT
  Sex: Male
  Weight: 116 kg

DRUGS (11)
  1. COCODAMOL [Suspect]
     Active Substance: ACETAMINOPHEN\CODEINE PHOSPHATE
     Indication: PRODUCT USED FOR UNKNOWN INDICATION
     Route: 065
  2. MOVICOL [Suspect]
     Active Substance: POLYETHYLENE GLYCOL 3350\POTASSIUM CHLORIDE\SODIUM BICARBONATE\SODIUM CHLORIDE
     Indication: PRODUCT USED FOR UNKNOWN INDICATION
     Route: 065
  3. DIAZEPAM. [Suspect]
     Active Substance: DIAZEPAM
     Indication: PRODUCT USED FOR UNKNOWN INDICATION
     Dosage: 2MG  THRICE A DAY
     Route: 065
  4. CLOZARIL [Suspect]
     Active Substance: CLOZAPINE
     Indication: SCHIZOPHRENIA
     Route: 048
     Dates: start: 20121219
  5. CLOZARIL [Suspect]
     Active Substance: CLOZAPINE
     Route: 048
  6. OMEPRAZOLE ALMUS [Suspect]
     Active Substance: OMEPRAZOLE
     Route: 065
  7. BECLOMETHASONE [BECLOMETASONE] [Suspect]
     Active Substance: BECLOMETHASONE
     Indication: PRODUCT USED FOR UNKNOWN INDICATION
     Dosage: 1 PUF
     Route: 065
  8. OMEPRAZOLE ALMUS [Suspect]
     Active Substance: OMEPRAZOLE
     Indication: PRODUCT USED FOR UNKNOWN INDICATION
     Route: 065
  9. VITAMIN D3 [Suspect]
     Active Substance: CHOLECALCIFEROL
     Indication: PRODUCT USED FOR UNKNOWN INDICATION
     Dosage: 20000 OT
     Route: 065
  10. CANDESARTAN. [Suspect]
     Active Substance: CANDESARTAN
     Indication: PRODUCT USED FOR UNKNOWN INDICATION
     Route: 065
  11. OMEPRAZOLE ALMUS [Suspect]
     Active Substance: OMEPRAZOLE
     Route: 065

REACTIONS (8)
  - Chest pain [Recovering/Resolving]
  - Cholecystitis [Recovered/Resolved]
  - Hydrocele [Unknown]
  - Dyspnoea [Unknown]
  - Cholecystitis infective [Recovered/Resolved]
  - Hepatitis C [Unknown]
  - Dizziness [Unknown]
  - Malaise [Unknown]

NARRATIVE: CASE EVENT DATE: 201401
